FAERS Safety Report 24996330 (Version 1)
Quarter: 2025Q1

REPORT INFORMATION
  Report Type: Spontaneous
  Country: US (occurrence: US)
  Receive Date: 20250221
  Receipt Date: 20250221
  Transmission Date: 20250409
  Serious: No
  Sender: PFIZER
  Company Number: US-PFIZER INC-PV202400107064

PATIENT
  Age: 70 Year
  Sex: Female

DRUGS (2)
  1. TUKYSA [Suspect]
     Active Substance: TUCATINIB
     Dosage: 50MG TAKE 1 TABLET TWICE A DAY
     Route: 048
  2. TUKYSA [Suspect]
     Active Substance: TUCATINIB
     Dosage: 150MG TAKE 1 TABLET TWICE A DAY
     Route: 048
     Dates: end: 202502

REACTIONS (1)
  - Neoplasm progression [Unknown]
